FAERS Safety Report 16239502 (Version 5)
Quarter: 2019Q2

REPORT INFORMATION
  Report Type: Spontaneous
  Country: US (occurrence: US)
  Receive Date: 20190425
  Receipt Date: 20190603
  Transmission Date: 20190711
  Serious: No
  Sender: FDA-Public Use
  Company Number: US-PFIZER INC-2019166438

PATIENT
  Age: 58 Year
  Sex: Female
  Weight: 103.4 kg

DRUGS (7)
  1. LEVOXYL [Suspect]
     Active Substance: LEVOTHYROXINE SODIUM
     Dosage: 112.5 UG, DAILY
  2. LEVOXYL [Suspect]
     Active Substance: LEVOTHYROXINE SODIUM
     Dosage: UNK
  3. LEVOXYL [Suspect]
     Active Substance: LEVOTHYROXINE SODIUM
     Dosage: 125 UG, DAILY
  4. LEVOXYL [Suspect]
     Active Substance: LEVOTHYROXINE SODIUM
     Dosage: 112.5 UG, TAKING 1 100MCG LIGHT YELLOW TABLET, 1/2 OF A 25MCG LIGHT OR DARK PINK TABLET CUT IN HALF
     Dates: start: 201904
  5. LEVOXYL [Suspect]
     Active Substance: LEVOTHYROXINE SODIUM
     Dosage: UNK
     Dates: end: 2019
  6. LEVOXYL [Suspect]
     Active Substance: LEVOTHYROXINE SODIUM
     Indication: HYPOTHYROIDISM
     Dosage: 112 UG, 1X/DAY
     Route: 048
  7. SYNTHROID [Suspect]
     Active Substance: LEVOTHYROXINE SODIUM
     Dosage: UNK
     Dates: start: 2019, end: 2019

REACTIONS (15)
  - Product quality issue [Unknown]
  - Frustration tolerance decreased [Unknown]
  - Anxiety [Unknown]
  - Frequent bowel movements [Not Recovered/Not Resolved]
  - Thirst [Unknown]
  - Drug ineffective [Unknown]
  - Emotional disorder [Unknown]
  - Product colour issue [Unknown]
  - Fatigue [Unknown]
  - Muscular weakness [Unknown]
  - Poor quality product administered [Unknown]
  - Feeling abnormal [Unknown]
  - Crying [Unknown]
  - Dry skin [Unknown]
  - Increased appetite [Unknown]

NARRATIVE: CASE EVENT DATE: 2019
